FAERS Safety Report 20598024 (Version 1)
Quarter: 2022Q1

REPORT INFORMATION
  Report Type: Spontaneous
  Country: US (occurrence: US)
  Receive Date: 20220315
  Receipt Date: 20220315
  Transmission Date: 20220423
  Serious: No
  Sender: FDA-Public Use
  Company Number: US-SA-SAC20220303001459

PATIENT
  Sex: Male

DRUGS (1)
  1. LARONIDASE [Suspect]
     Active Substance: LARONIDASE
     Indication: Mucopolysaccharidosis I
     Dosage: 46.40 MG, QOW
     Route: 042
     Dates: start: 20180607

REACTIONS (3)
  - Depression [Not Recovered/Not Resolved]
  - Anger [Unknown]
  - Product dose omission issue [Unknown]
